FAERS Safety Report 4634057-X (Version None)
Quarter: 2005Q2

REPORT INFORMATION
  Report Type: 
  Country: None (occurrence: None)
  Receive Date: 20050413
  Receipt Date: 20050322
  Transmission Date: 20051028
  Serious: Yes (Life-Threatening, Hospitalization)
  Sender: FDA-Public Use
  Company Number: AU-ROCHE-399287

PATIENT
  Age: 43 Year
  Sex: Male
  Weight: 86.6 kg

DRUGS (14)
  1. PEG-INTERFERON ALFA 2A (RO 25-8310) [Suspect]
     Route: 058
     Dates: start: 20041216, end: 20050306
  2. PEG-INTERFERON ALFA 2A (RO 25-8310) [Suspect]
     Route: 058
     Dates: start: 20050307, end: 20050310
  3. RIBAVIRIN [Suspect]
     Route: 048
     Dates: start: 20041216, end: 20050306
  4. RIBAVIRIN [Suspect]
     Dosage: IN THE MORNING. DECREASED DOSEAGE.
     Route: 048
     Dates: start: 20050307, end: 20050310
  5. CITALOPRAM HYDROBROMIDE [Concomitant]
     Indication: DEPRESSION
     Dates: start: 20000515
  6. CODEINE PHOSPHATE [Concomitant]
     Indication: HEADACHE
     Dates: start: 20000315
  7. PARACETAMOL [Concomitant]
     Indication: HEADACHE
     Dates: start: 20000315
  8. MULTI-VITAMIN [Concomitant]
     Dates: start: 20041216
  9. CLEXANE [Concomitant]
  10. UNSPECIFIED DRUG [Concomitant]
     Indication: FATIGUE
     Dosage: DRUG NAME REPORTED AS MULTIVITAL
  11. TINIDAZOLE [Concomitant]
     Dates: start: 20050219, end: 20050303
  12. METOCLOPRAMIDE [Concomitant]
     Dates: start: 20050219
  13. LOPERAMIDE HCL [Concomitant]
     Dates: start: 20050219
  14. PROCHLORPERAZINE [Concomitant]
     Dates: start: 20050212, end: 20050219

REACTIONS (9)
  - DEHYDRATION [None]
  - DIARRHOEA [None]
  - ELECTROLYTE IMBALANCE [None]
  - GIARDIASIS [None]
  - HYPOKALAEMIA [None]
  - MYALGIA [None]
  - NAUSEA [None]
  - VOMITING [None]
  - WEIGHT DECREASED [None]
